FAERS Safety Report 7183693-8 (Version None)
Quarter: 2010Q4

REPORT INFORMATION
  Report Type: 
  Country: None (occurrence: None)
  Receive Date: 20101210
  Receipt Date: 20101206
  Transmission Date: 20110411
  Serious: Yes (Hospitalization)
  Sender: FDA-Public Use
  Company Number: 1000017627

PATIENT
  Age: 77 Year
  Sex: Female

DRUGS (18)
  1. BYSTOLIC [Suspect]
     Indication: HYPERTENSION
     Dosage: 10 MG (10 MG, 1 IN 1 D), ORAL
     Route: 048
     Dates: start: 20100816, end: 20101003
  2. BYSTOLIC [Suspect]
     Indication: HYPERTENSION
     Dosage: 10 MG (10 MG, 1 IN 1 D), ORAL
     Route: 048
     Dates: start: 20101005
  3. TEKTURNA (ALISKIREN) (ALISKIREN) [Concomitant]
  4. METHYLDOPA (METHYLDOPA) (250 MILLIGRAM) (METHYLDOPA) [Concomitant]
  5. COREG (CARVEDILOL) (CARVEDILOL) [Concomitant]
  6. LASIX [Concomitant]
  7. KLOR-CON (POTASSIUM CHLORIDE) (POTASSIUM CHLORIDE) [Concomitant]
  8. SINEMET (CARBIDOPA-LEVODOPA) (CARBIDOPA-LEVODOPA) [Concomitant]
  9. SEROQUEL (QUETIAPINE FUMARATE) (50 MILLIGRAM) (QUETIAPINE FUMARATE) [Concomitant]
  10. WELLBUTRIN XL (BUPROPION HYDROCHLORIDE) (TABLETS) (BUPROPION HYDROCHLO [Concomitant]
  11. SYNTHROID (LEVOTHYROXINE SODIUM) (88 MICROGRAM, TABLETS) (LEVOTHYROXIN [Concomitant]
  12. DOCUSATE SODIUM (DOCUSATE SODIUM) (DOCUSATE SODIUM) [Concomitant]
  13. ASPIRIN (ACETYLSALICYLIC ACID) (81 MILLIGRAM, TABLETS) (ACETYLSALICYLI [Concomitant]
  14. AMITRIPTYLINE (AMITRIPTYLINE) (AMITRIPTYLINE) [Concomitant]
  15. ALBUTEROL (ALBUTEROL) (90 MICROGRAM, INHALANT) (ALBUTEROL) [Concomitant]
  16. MULTIVITAMIN (MULTIVITAMIN) (MULTIVITAMIN) [Concomitant]
  17. COMTAN (ENTACAPONE) (ENTACAPONE) [Concomitant]
  18. METFORMIN HCL [Concomitant]

REACTIONS (2)
  - CONDITION AGGRAVATED [None]
  - PARKINSON'S DISEASE [None]
